FAERS Safety Report 24088029 (Version 1)
Quarter: 2024Q3

REPORT INFORMATION
  Report Type: Spontaneous
  Country: BE (occurrence: BE)
  Receive Date: 20240715
  Receipt Date: 20240715
  Transmission Date: 20241016
  Serious: Yes (Hospitalization, Other)
  Sender: ABBVIE
  Company Number: BE-ABBVIE-5838007

PATIENT
  Age: 26 Year
  Sex: Male

DRUGS (2)
  1. RINVOQ [Suspect]
     Active Substance: UPADACITINIB
     Indication: Oligoarthritis
     Route: 048
     Dates: start: 202201
  2. RISPERDAL [Concomitant]
     Active Substance: RISPERIDONE
     Indication: Product used for unknown indication

REACTIONS (3)
  - Abdominal pain [Unknown]
  - Duodenal perforation [Unknown]
  - Pyrexia [Unknown]
